FAERS Safety Report 9020540 (Version 1)
Quarter: 2013Q1

REPORT INFORMATION
  Report Type: Spontaneous
  Country: US (occurrence: US)
  Receive Date: 20130119
  Receipt Date: 20130119
  Transmission Date: 20140127
  Serious: No
  Sender: FDA-Public Use
  Company Number: US-ALLERGAN-1207626US

PATIENT
  Age: 50 None
  Sex: Female
  Weight: 54.42 kg

DRUGS (3)
  1. BOTOX COSMETIC [Suspect]
     Indication: SKIN WRINKLING
     Dosage: UNK UNITS, SINGLE
     Route: 030
     Dates: start: 201102, end: 201102
  2. BOTOX COSMETIC [Suspect]
     Indication: SKIN WRINKLING
  3. DYSPORT [Suspect]
     Dosage: UNK
     Dates: start: 201010, end: 201010

REACTIONS (5)
  - Chest discomfort [Recovered/Resolved]
  - Dysphonia [Recovered/Resolved]
  - Influenza like illness [Recovered/Resolved]
  - Dyspnoea [Recovered/Resolved]
  - Asthenia [Recovered/Resolved]
